FAERS Safety Report 5331235-1 (Version None)
Quarter: 2007Q2

REPORT INFORMATION
  Report Type: 
  Country: None (occurrence: None)
  Receive Date: 20070522
  Receipt Date: 20070516
  Transmission Date: 20071010
  Serious: Yes (Hospitalization)
  Sender: FDA-Public Use
  Company Number: JP-MERCK-0701USA01258

PATIENT
  Age: 67 Year
  Sex: Female

DRUGS (10)
  1. PEPCID RPD [Suspect]
     Indication: REFLUX OESOPHAGITIS
     Route: 048
     Dates: start: 20041203, end: 20070109
  2. [THERAPY UNSPECIFIED] [Suspect]
     Indication: MYELOPROLIFERATIVE DISORDER
     Route: 048
     Dates: start: 20041203, end: 20070109
  3. MUCOSOLVAN [Concomitant]
     Indication: BRONCHITIS
     Route: 048
     Dates: start: 20040227
  4. MUCOSOLVAN [Concomitant]
     Indication: REFLUX OESOPHAGITIS
     Route: 048
     Dates: start: 20040227
  5. BIOFERMIN [Concomitant]
     Indication: ENTEROCOLITIS
     Route: 048
     Dates: start: 20041203
  6. SELBEX [Concomitant]
     Indication: GASTRITIS
     Route: 048
     Dates: start: 20041203
  7. THYRADIN-S [Concomitant]
     Indication: HYPOTHYROIDISM
     Route: 048
     Dates: start: 20040304
  8. FRANDOL [Concomitant]
     Indication: ANGINA PECTORIS
     Route: 048
     Dates: start: 20041203
  9. URSO 250 [Concomitant]
     Indication: POST CHOLECYSTECTOMY SYNDROME
     Route: 048
     Dates: start: 20041203
  10. [THERAPY UNSPECIFIED] [Concomitant]
     Route: 041
     Dates: start: 20040301, end: 20070131

REACTIONS (2)
  - ENTEROCOLITIS [None]
  - RENAL FAILURE ACUTE [None]
